FAERS Safety Report 5224637-5 (Version None)
Quarter: 2007Q1

REPORT INFORMATION
  Report Type: 
  Country: None (occurrence: None)
  Receive Date: 20070126
  Receipt Date: 20061130
  Transmission Date: 20070707
  Serious: Yes (Death)
  Sender: FDA-Public Use
  Company Number: T200601603

PATIENT
  Age: 60 Year
  Sex: 0

DRUGS (3)
  1. FLUOXETINE [Suspect]
     Dosage: ORAL
     Route: 048
  2. PIROXICAM [Suspect]
     Dosage: ORAL
     Route: 048
  3. ATENOLOL [Suspect]
     Dosage: ORAL
     Route: 048

REACTIONS (3)
  - CARDIAC ARREST [None]
  - COMPLETED SUICIDE [None]
  - RESPIRATORY ARREST [None]
